FAERS Safety Report 8923547 (Version 2)
Quarter: 2013Q1

REPORT INFORMATION
  Report Type: Spontaneous
  Country: CH (occurrence: CH)
  Receive Date: 20121123
  Receipt Date: 20130111
  Transmission Date: 20140127
  Serious: Yes (Death, Hospitalization, Other)
  Sender: FDA-Public Use
  Company Number: CH-PFIZER INC-2012292076

PATIENT
  Age: 75 Year
  Sex: Male

DRUGS (16)
  1. ALDACTONE [Suspect]
     Dosage: 50 MG, 1X/DAY
     Route: 048
     Dates: start: 20101123, end: 20120930
  2. DETRUSITOL [Suspect]
     Dosage: 4 MG, 1X/DAY
     Route: 048
     Dates: start: 20110104, end: 201210
  3. RAMIPRIL [Suspect]
     Dosage: 1.25 MG, 1X/DAY
     Route: 048
     Dates: start: 20120618, end: 201210
  4. SOLIAN [Suspect]
     Dosage: 400 MG, 2X/DAY
     Route: 048
     Dates: start: 201105, end: 20121003
  5. SOLIAN [Suspect]
     Dosage: 200 MG, UNK
     Route: 048
     Dates: start: 20121004, end: 20121011
  6. SOLIAN [Suspect]
     Dosage: 100 MG, 2X/DAY
     Route: 048
     Dates: start: 20121012, end: 20121016
  7. SOLIAN [Suspect]
     Dosage: 50-100MG DAILY
     Route: 048
     Dates: start: 20121017
  8. DISTRANEURIN [Suspect]
     Dosage: 300 MG, 1X/DAY
     Route: 048
     Dates: start: 20110920
  9. CITALOPRAM [Suspect]
     Dosage: 20 MG, 1X/DAY
     Route: 048
     Dates: start: 20110321, end: 201210
  10. TOREM [Suspect]
     Dosage: 20 MG, 1X/DAY
     Route: 048
     Dates: start: 20101123, end: 20120930
  11. BELOC ZOK [Suspect]
     Dosage: 50 MG, 1X/DAY
     Route: 048
     Dates: start: 20101011, end: 201210
  12. NEXIUM [Suspect]
     Dosage: 20 MG, 1X/DAY
     Route: 048
     Dates: start: 20101103, end: 201210
  13. PRADIF [Concomitant]
     Dosage: 400 UG, 1X/DAY
     Dates: start: 20121011, end: 201210
  14. LANTUS [Concomitant]
     Dosage: 18 IU, 1X/DAY
     Route: 030
     Dates: start: 20120618
  15. SIMVASTATIN [Concomitant]
     Dosage: 20 MG, 1X/DAY
     Route: 048
     Dates: start: 20101011
  16. ASPIRIN CARDIO [Concomitant]
     Dosage: 100 MG, 1X/DAY
     Route: 048
     Dates: start: 20101011

REACTIONS (4)
  - Confusional state [Fatal]
  - Hyperglycaemia [Fatal]
  - Lobar pneumonia [Fatal]
  - Subdural haemorrhage [Unknown]
